FAERS Safety Report 4673232-5 (Version None)
Quarter: 2005Q2

REPORT INFORMATION
  Report Type: 
  Country: None (occurrence: None)
  Receive Date: 20050523
  Receipt Date: 20050523
  Transmission Date: 20051028
  Serious: Yes (Other)
  Sender: FDA-Public Use
  Company Number: None

PATIENT

DRUGS (1)
  1. LEVOTHYROXINE SODIUM [Suspect]
     Indication: HYPOTHYROIDISM
     Dosage: 0.1 MG DAILY

REACTIONS (3)
  - MENORRHAGIA [None]
  - MENSTRUATION IRREGULAR [None]
  - MUSCLE SPASMS [None]
